FAERS Safety Report 10820337 (Version 1)
Quarter: 2015Q1

REPORT INFORMATION
  Report Type: Report from Study
  Country: US (occurrence: None)
  Receive Date: 20150213
  Receipt Date: 20150213
  Transmission Date: 20150721
  Serious: Yes (Hospitalization, Other)
  Sender: FDA-Public Use
  Company Number: 2011BI030081

PATIENT
  Age: 37 Year
  Sex: Female

DRUGS (1)
  1. AVONEX [Suspect]
     Active Substance: INTERFERON BETA-1A
     Indication: MULTIPLE SCLEROSIS
     Route: 030
     Dates: start: 20060407

REACTIONS (4)
  - Nasopharyngitis [None]
  - Cardiac neoplasm unspecified [None]
  - Visual impairment [None]
  - Myasthenia gravis [None]

NARRATIVE: CASE EVENT DATE: 200701
